FAERS Safety Report 9718719 (Version 1)
Quarter: 2013Q4

REPORT INFORMATION
  Report Type: Spontaneous
  Country: US (occurrence: None)
  Receive Date: 20131125
  Receipt Date: 20131125
  Transmission Date: 20140711
  Serious: Yes (Hospitalization)
  Sender: FDA-Public Use
  Company Number: IMP_06889_2013

PATIENT
  Age: 48 Year
  Sex: Female

DRUGS (8)
  1. WELLBUTRIN [Suspect]
     Indication: NERVOUS SYSTEM DISORDER
  2. WELLBUTRIN [Suspect]
     Indication: STRESS
  3. WELLBUTRIN [Suspect]
     Indication: CARDIAC DISORDER
  4. LYRICA [Suspect]
     Indication: PAIN IN EXTREMITY
     Dates: start: 2008
  5. LASIX /0032601/ (LASIX-FUROSEMIDE) [Concomitant]
  6. POTASSIUM [Concomitant]
  7. COREG [Concomitant]
  8. MULTIVITAMINS [Concomitant]

REACTIONS (9)
  - Loss of consciousness [None]
  - Road traffic accident [None]
  - Nervous system disorder [None]
  - Stress [None]
  - Cardiac disorder [None]
  - Dehydration [None]
  - Nervousness [None]
  - Body temperature increased [None]
  - Off label use [None]
